FAERS Safety Report 6831659-7 (Version None)
Quarter: 2010Q3

REPORT INFORMATION
  Report Type: 
  Country: None (occurrence: None)
  Receive Date: 20100707
  Receipt Date: 20100623
  Transmission Date: 20110219
  Serious: Yes (Hospitalization)
  Sender: FDA-Public Use
  Company Number: 7009250

PATIENT
  Age: 6 Year
  Sex: Male

DRUGS (1)
  1. SAIZEN [Suspect]
     Dosage: 0.75 MG
     Dates: start: 20090401

REACTIONS (2)
  - DEVICE RELATED INFECTION [None]
  - PERITONITIS [None]
